FAERS Safety Report 19259101 (Version 1)
Quarter: 2021Q2

REPORT INFORMATION
  Report Type: Spontaneous
  Country: US (occurrence: US)
  Receive Date: 20210514
  Receipt Date: 20210514
  Transmission Date: 20210717
  Serious: No
  Sender: FDA-Public Use
  Company Number: US-ROMARKLABS-2020-US-000250

PATIENT
  Age: 55 Year
  Sex: Female

DRUGS (14)
  1. CATAPLEX B [Concomitant]
     Indication: PRODUCT USED FOR UNKNOWN INDICATION
  2. LACTIC ACID. [Concomitant]
     Active Substance: LACTIC ACID
     Indication: PRODUCT USED FOR UNKNOWN INDICATION
  3. PARA?CHORD SUPPLEMENT [Concomitant]
     Indication: PRODUCT USED FOR UNKNOWN INDICATION
  4. BOWEL MOVER SUPPLEMENT [Concomitant]
     Indication: PRODUCT USED FOR UNKNOWN INDICATION
  5. FP CLEANSE [Concomitant]
     Indication: PRODUCT USED FOR UNKNOWN INDICATION
  6. TUMERIC [Concomitant]
     Active Substance: HERBALS\TURMERIC
     Indication: PRODUCT USED FOR UNKNOWN INDICATION
  7. ALINIA [Suspect]
     Active Substance: NITAZOXANIDE
     Indication: PRODUCT USED FOR UNKNOWN INDICATION
     Dosage: TAKE ONE TABLET BY MOUTH TWICE DAILY FOR 14 DAYS
     Route: 048
     Dates: start: 20200827
  8. VITAMIN B12 [Concomitant]
     Active Substance: CYANOCOBALAMIN
     Indication: NUTRITIONAL SUPPLEMENTATION
  9. PMG SUPPLEMENT [Concomitant]
     Indication: PRODUCT USED FOR UNKNOWN INDICATION
  10. ANTRONEX [Concomitant]
     Indication: PRODUCT USED FOR UNKNOWN INDICATION
  11. SPANISH BLACK RADISH [Concomitant]
     Indication: PRODUCT USED FOR UNKNOWN INDICATION
  12. FEN CHO SUPPLEMENT [Concomitant]
     Indication: PRODUCT USED FOR UNKNOWN INDICATION
  13. TRACE MINERALS [Concomitant]
     Active Substance: MINERALS
     Indication: PRODUCT USED FOR UNKNOWN INDICATION
  14. LYMPHATIC SUPPORT [Concomitant]
     Indication: PRODUCT USED FOR UNKNOWN INDICATION

REACTIONS (1)
  - Rash vesicular [Unknown]

NARRATIVE: CASE EVENT DATE: 20200915
